FAERS Safety Report 4572139-1 (Version None)
Quarter: 2005Q1

REPORT INFORMATION
  Report Type: 
  Country: None (occurrence: None)
  Receive Date: 20050202
  Receipt Date: 20050128
  Transmission Date: 20050727
  Serious: Yes (Life-Threatening, Hospitalization)
  Sender: FDA-Public Use
  Company Number: 2004-BP-05240RO

PATIENT
  Age: 64 Year
  Sex: Male

DRUGS (11)
  1. PREDNISONE TAB [Suspect]
     Indication: MANTLE CELL LYMPHOMA
     Dosage: 100 MG/DAY FOR 5 DAYS (R-CHOP 1 CYCLE EVERY 21 DAYS ) (NR),PO
     Route: 048
     Dates: start: 20030404, end: 20030818
  2. GENASENSE [Suspect]
     Indication: MANTLE CELL LYMPHOMA
     Dosage: 3 MG /KG/DAY ( 7 DAY CYCLE EVERY 21 DAYS) (NR), IV
     Route: 042
     Dates: start: 20021105, end: 20030814
  3. RITUXIMAB (RITUXIMAB) [Suspect]
     Indication: MANTLE CELL LYMPHOMA
     Dosage: 375 MG/M2 (R-CHOP 1 CYCLE EVERY 21 DAYS) (NR), IV
     Route: 042
     Dates: start: 20030404
  4. CYCLOPHOSPHAMIDE [Suspect]
     Indication: MANTLE CELL LYMPHOMA
     Dosage: 750 MG/M2 (R-CHOP 1 CYCLE EVERY 21 DAYS) (NR), IV
     Route: 042
     Dates: start: 20030404
  5. DOXORUBICIN HCL [Suspect]
     Indication: MANTLE CELL LYMPHOMA
     Dosage: 50 MG/M2 (R-CHOP 1 CYCLE EVERY 21 DAYS) (NR), IV
     Route: 042
     Dates: start: 20030404
  6. VINCRISTINE [Suspect]
     Indication: MANTLE CELL LYMPHOMA
     Dosage: 1.4 MG/M2 (R-CHOP 1 CYCLE EVERY 21 DAYS) (NR), IV
     Route: 042
     Dates: start: 20030404
  7. ACETAMINOPHEN [Concomitant]
  8. DOLASETRON MESYLATE (DOLASETRON MESILATE) [Concomitant]
  9. FEXOFENADINE HCL [Concomitant]
  10. SENNA EXTRACT    (SENNA ALEXANDRINA) [Concomitant]
  11. WARFARIN SODIUM [Concomitant]

REACTIONS (7)
  - ASTHENIA [None]
  - BACTERAEMIA [None]
  - CHILLS [None]
  - FEBRILE NEUTROPENIA [None]
  - HAEMOGLOBIN DECREASED [None]
  - PLATELET COUNT INCREASED [None]
  - WHITE BLOOD CELL COUNT DECREASED [None]
